FAERS Safety Report 4948444-3 (Version None)
Quarter: 2006Q1

REPORT INFORMATION
  Report Type: 
  Country: None (occurrence: None)
  Receive Date: 20060320
  Receipt Date: 20060309
  Transmission Date: 20060701
  Serious: Yes (Hospitalization)
  Sender: FDA-Public Use
  Company Number: US-AMGEN-US171771

PATIENT
  Sex: Female

DRUGS (8)
  1. ARANESP [Suspect]
     Indication: DIALYSIS
     Route: 042
     Dates: start: 20050701
  2. DIOVAN [Concomitant]
  3. NORVASC [Concomitant]
  4. ATENOLOL [Concomitant]
  5. SENSIPAR [Concomitant]
  6. PERCOCET [Concomitant]
  7. INSULIN [Concomitant]
  8. PHOSLO [Concomitant]

REACTIONS (3)
  - HAEMOGLOBIN DECREASED [None]
  - HOSPITALISATION [None]
  - THERAPEUTIC RESPONSE DECREASED [None]
